FAERS Safety Report 8163112-5 (Version None)
Quarter: 2012Q1

REPORT INFORMATION
  Report Type: 
  Country: None (occurrence: None)
  Receive Date: 20120224
  Receipt Date: 20110209
  Transmission Date: 20120608
  Serious: No
  Sender: FDA-Public Use
  Company Number: US-PFIZER INC-K201100148

PATIENT
  Age: 73 Year
  Sex: Female
  Weight: 47.619 kg

DRUGS (2)
  1. FLECTOR [Suspect]
     Indication: BURSITIS
  2. FLECTOR [Suspect]
     Indication: PAIN
     Dosage: 1 PATCH, UNK
     Route: 061
     Dates: start: 20110201, end: 20110201

REACTIONS (1)
  - APPLICATION SITE RASH [None]
